FAERS Safety Report 8274337-2 (Version None)
Quarter: 2012Q2

REPORT INFORMATION
  Report Type: 
  Country: None (occurrence: None)
  Receive Date: 20120411
  Receipt Date: 20120321
  Transmission Date: 20120825
  Serious: Yes (Hospitalization)
  Sender: FDA-Public Use
  Company Number: US-UCBSA-027820

PATIENT
  Age: 54 Year
  Sex: Male
  Weight: 99.7 kg

DRUGS (7)
  1. CERTOLIZUMAB PEGOL [Suspect]
     Dosage: NBR OF DOSES RECEIVED: 2
     Route: 058
     Dates: start: 20110120, end: 20110217
  2. CELEBREX [Concomitant]
     Indication: RHEUMATOID ARTHRITIS
     Route: 048
     Dates: start: 20041001
  3. FOLIC ACID [Concomitant]
     Indication: RHEUMATOID ARTHRITIS
     Route: 048
     Dates: start: 20040401
  4. CERTOLIZUMAB PEGOL [Suspect]
     Indication: RHEUMATOID ARTHRITIS
     Dosage: NBR OF DOSES RECEIVED: 3
     Route: 058
     Dates: start: 20101210, end: 20110106
  5. ASPIRIN [Concomitant]
     Indication: PROPHYLAXIS
     Route: 048
     Dates: start: 20101006
  6. METHOTREXATE [Concomitant]
     Indication: RHEUMATOID ARTHRITIS
     Route: 048
     Dates: start: 20040218
  7. SKELAXIN [Concomitant]
     Indication: PAIN
     Route: 048
     Dates: start: 20060426

REACTIONS (7)
  - ABASIA [None]
  - OSTEOPENIA [None]
  - RASH PAPULAR [None]
  - RHEUMATOID ARTHRITIS [None]
  - RASH GENERALISED [None]
  - MOVEMENT DISORDER [None]
  - SYNOVITIS [None]
